FAERS Safety Report 18264726 (Version 3)
Quarter: 2020Q3

REPORT INFORMATION
  Report Type: Spontaneous
  Country: US (occurrence: US)
  Receive Date: 20200914
  Receipt Date: 20200928
  Transmission Date: 20201103
  Serious: No
  Sender: FDA-Public Use
  Company Number: US-PFIZER INC-2020353054

PATIENT
  Age: 7 Year
  Sex: Female

DRUGS (1)
  1. EUCRISA [Suspect]
     Active Substance: CRISABOROLE
     Indication: DERMATITIS ATOPIC
     Dosage: UNK UNK, 2X/DAY (APPLY TO AFFECTED AREAS (ANTECUBITAL FOSSA) TWICE DAILY AS NEEDED)
     Dates: start: 20200908

REACTIONS (9)
  - Eczema [Unknown]
  - Scratch [Unknown]
  - Application site pain [Unknown]
  - Application site pruritus [Unknown]
  - Drug ineffective [Unknown]
  - Application site hypersensitivity [Unknown]
  - Erythema [Unknown]
  - Rash [Not Recovered/Not Resolved]
  - Skin exfoliation [Unknown]
